FAERS Safety Report 16418054 (Version 2)
Quarter: 2019Q3

REPORT INFORMATION
  Report Type: Report from Study
  Country: US (occurrence: US)
  Receive Date: 20190611
  Receipt Date: 20190802
  Transmission Date: 20191004
  Serious: Yes (Other)
  Sender: FDA-Public Use
  Company Number: PHEH2019US024402

PATIENT
  Age: 62 Year
  Sex: Female

DRUGS (2)
  1. TRAVATAN Z [Suspect]
     Active Substance: TRAVOPROST
     Indication: GLAUCOMA
     Dosage: UNK UNK, QHS
     Route: 047
     Dates: end: 20180219
  2. SIMBRINZA [Suspect]
     Active Substance: BRIMONIDINE TARTRATE\BRINZOLAMIDE
     Indication: GLAUCOMA
     Dosage: UNK
     Route: 047

REACTIONS (8)
  - Vision blurred [Unknown]
  - Blindness [Unknown]
  - Laryngeal oedema [Unknown]
  - Foreign body sensation in eyes [Unknown]
  - Eye irritation [Unknown]
  - Pharyngeal swelling [Recovered/Resolved]
  - Eye allergy [Unknown]
  - Ocular hyperaemia [Unknown]

NARRATIVE: CASE EVENT DATE: 20180219
